FAERS Safety Report 13120900 (Version 1)
Quarter: 2017Q1

REPORT INFORMATION
  Report Type: Spontaneous
  Country: US (occurrence: US)
  Receive Date: 20170113
  Receipt Date: 20170113
  Transmission Date: 20170428
  Serious: Yes (Death)
  Sender: FDA-Public Use
  Company Number: None

PATIENT
  Age: 37 Year
  Sex: Male

DRUGS (1)
  1. MESNEX [Suspect]
     Active Substance: MESNA
     Indication: MALIGNANT CONNECTIVE TISSUE NEOPLASM
     Dosage: ?          OTHER FREQUENCY:EVERY 2 WEEKS3;OTHER ROUTE:INFUSED?
     Dates: start: 20161020

REACTIONS (1)
  - Death [None]

NARRATIVE: CASE EVENT DATE: 20161222
